FAERS Safety Report 26069894 (Version 1)
Quarter: 2025Q4

REPORT INFORMATION
  Report Type: Spontaneous
  Country: US (occurrence: US)
  Receive Date: 20251120
  Receipt Date: 20251120
  Transmission Date: 20260118
  Serious: No
  Sender: CATALYST PHARMA
  Company Number: US-CATALYST PHARMACEUTICALS-US-CATA-25-01443

PATIENT
  Sex: Male
  Weight: 51.247 kg

DRUGS (4)
  1. AGAMREE [Suspect]
     Active Substance: VAMOROLONE
     Indication: Duchenne muscular dystrophy
     Dosage: 6.5 ML ONCE A DAY
     Route: 048
     Dates: start: 20240514
  2. AGAMREE [Suspect]
     Active Substance: VAMOROLONE
     Dosage: 5 ML ONCE A DAY
     Route: 048
     Dates: start: 20250828
  3. CLONIDINE [Concomitant]
     Active Substance: CLONIDINE
     Indication: Attention deficit hyperactivity disorder
     Dosage: 0.1 MG TWICE A DAY
     Route: 065
  4. HALOPERIDOL [Concomitant]
     Active Substance: HALOPERIDOL
     Indication: Autism spectrum disorder
     Dosage: 2 MG THREE TIMES A DAY
     Route: 065

REACTIONS (1)
  - Hypertension [Not Recovered/Not Resolved]
